FAERS Safety Report 6610520-7 (Version None)
Quarter: 2010Q1

REPORT INFORMATION
  Report Type: 
  Country: None (occurrence: None)
  Receive Date: 20100302
  Receipt Date: 20100226
  Transmission Date: 20100710
  Serious: Yes (Hospitalization)
  Sender: FDA-Public Use
  Company Number: US-WYE-H13783410

PATIENT
  Sex: Female

DRUGS (6)
  1. ADVIL PM [Suspect]
     Indication: INSOMNIA
     Dosage: UNKNOWN
     Route: 065
  2. COGENTIN [Concomitant]
     Indication: MOVEMENT DISORDER
     Dosage: UNKNOWN
     Route: 048
     Dates: start: 20091001
  3. FLAGYL [Concomitant]
     Indication: INFECTION
     Dosage: 500 MG.
     Route: 048
     Dates: start: 20091010, end: 20091019
  4. AMBIEN [Suspect]
     Indication: INSOMNIA
     Dosage: 12.5 MG
     Route: 048
     Dates: start: 20090406, end: 20091019
  5. IBUPROFEN [Suspect]
     Indication: DRUG USE FOR UNKNOWN INDICATION
     Dosage: UNKNOWN
     Route: 065
  6. LEVAQUIN [Suspect]
     Indication: INFECTION
     Dosage: 500 MG ONE IN ONE DAY
     Route: 048
     Dates: start: 20091013, end: 20091019

REACTIONS (4)
  - CONDITION AGGRAVATED [None]
  - INSOMNIA [None]
  - PARANOIA [None]
  - PSYCHOTIC DISORDER [None]
